FAERS Safety Report 17101191 (Version 1)
Quarter: 2019Q4

REPORT INFORMATION
  Report Type: Report from Study
  Country: US (occurrence: US)
  Receive Date: 20191202
  Receipt Date: 20191202
  Transmission Date: 20200122
  Serious: Yes (Hospitalization)
  Sender: FDA-Public Use
  Company Number: US-ACTELION-A-US2019-190326

PATIENT
  Age: 39 Year
  Sex: Female

DRUGS (3)
  1. VELETRI [Suspect]
     Active Substance: EPOPROSTENOL
     Dosage: 37.5 NG/KG, PER MIN
     Route: 042
  2. VELETRI [Suspect]
     Active Substance: EPOPROSTENOL
     Indication: PULMONARY ARTERIAL HYPERTENSION
     Dosage: 28.5 NG/KG, PER MIN
     Route: 042
     Dates: start: 20190425
  3. VELETRI [Suspect]
     Active Substance: EPOPROSTENOL
     Dosage: 4 NG/KG, PER MIN
     Route: 042
     Dates: start: 201904

REACTIONS (4)
  - Therapy change [Not Recovered/Not Resolved]
  - Pain in jaw [Not Recovered/Not Resolved]
  - Vascular device infection [Unknown]
  - Purulent discharge [Unknown]

NARRATIVE: CASE EVENT DATE: 20190729
